FAERS Safety Report 17956499 (Version 1)
Quarter: 2020Q2

REPORT INFORMATION
  Report Type: Spontaneous
  Country: US (occurrence: US)
  Receive Date: 20200627
  Receipt Date: 20200627
  Transmission Date: 20200714
  Serious: Yes (Other)
  Sender: FDA-Public Use
  Company Number: None

PATIENT
  Age: 23 Year
  Sex: Female
  Weight: 104.85 kg

DRUGS (3)
  1. LEVONORGESTREL TABLET 1.5 MG [Suspect]
     Active Substance: LEVONORGESTREL
     Indication: POST COITAL CONTRACEPTION
     Dosage: ?          QUANTITY:1 TABLET(S);OTHER FREQUENCY:JUST ONCE;?
     Route: 048
     Dates: start: 20200621, end: 20200621
  2. TYLENOL [Concomitant]
     Active Substance: ACETAMINOPHEN
  3. OTC POTASSIUM [Concomitant]

REACTIONS (1)
  - Seizure [None]

NARRATIVE: CASE EVENT DATE: 20200621
